FAERS Safety Report 6566628-8 (Version None)
Quarter: 2010Q1

REPORT INFORMATION
  Report Type: 
  Country: None (occurrence: None)
  Receive Date: 20100127
  Receipt Date: 20100118
  Transmission Date: 20100710
  Serious: Yes (Hospitalization, Other)
  Sender: FDA-Public Use
  Company Number: 2010EU000236

PATIENT

DRUGS (1)
  1. PROGRAF [Suspect]
     Dosage: 6 MG, BID, TRANSPLACENTAL
     Route: 064
     Dates: start: 20080701, end: 20090701

REACTIONS (3)
  - CAESAREAN SECTION [None]
  - MATERNAL DRUGS AFFECTING FOETUS [None]
  - PREMATURE BABY [None]
